FAERS Safety Report 7209288-5 (Version None)
Quarter: 2011Q1

REPORT INFORMATION
  Report Type: 
  Country: None (occurrence: None)
  Receive Date: 20110104
  Receipt Date: 20101230
  Transmission Date: 20110831
  Serious: Yes (Hospitalization)
  Sender: FDA-Public Use
  Company Number: B0691575A

PATIENT
  Sex: Female

DRUGS (8)
  1. TAVANIC [Suspect]
     Indication: OSTEITIS
     Dosage: 750MG PER DAY
     Route: 048
     Dates: start: 20101116, end: 20101126
  2. DEBRIDAT [Suspect]
     Route: 048
     Dates: end: 20101127
  3. AUGMENTIN '125' [Suspect]
     Indication: OSTEITIS
     Dosage: 3G PER DAY
     Route: 048
     Dates: start: 20101116, end: 20101122
  4. CLAMOXYL [Suspect]
     Indication: OSTEITIS
     Dosage: 3UNIT PER DAY
     Route: 048
     Dates: start: 20101123, end: 20101126
  5. ACUPAN [Suspect]
     Indication: OSTEITIS
     Route: 042
     Dates: start: 20101123, end: 20101127
  6. ACETAMINOPHEN AND TRAMADOL HCL [Suspect]
     Indication: PAIN
     Route: 048
     Dates: end: 20101126
  7. FLAGYL [Suspect]
     Indication: OSTEITIS
     Dosage: 1500MG PER DAY
     Route: 048
     Dates: start: 20101112, end: 20101116
  8. CETORNAN [Suspect]
     Route: 048
     Dates: end: 20101126

REACTIONS (2)
  - TRANSAMINASES INCREASED [None]
  - CYTOLYTIC HEPATITIS [None]
